FAERS Safety Report 8485000-7 (Version None)
Quarter: 2012Q3

REPORT INFORMATION
  Report Type: 
  Country: None (occurrence: None)
  Receive Date: 20120703
  Receipt Date: 20120625
  Transmission Date: 20120928
  Serious: Yes (Hospitalization)
  Sender: FDA-Public Use
  Company Number: KR-US-EMD SERONO, INC.-7142736

PATIENT
  Sex: Female
  Weight: 34 kg

DRUGS (1)
  1. SAIZEN [Suspect]
     Indication: GROWTH RETARDATION
     Route: 058
     Dates: start: 20120208

REACTIONS (2)
  - VISUAL ACUITY REDUCED [None]
  - BRAIN NEOPLASM [None]
